FAERS Safety Report 7045178-9 (Version None)
Quarter: 2010Q4

REPORT INFORMATION
  Report Type: 
  Country: None (occurrence: None)
  Receive Date: 20101014
  Receipt Date: 20100702
  Transmission Date: 20110411
  Serious: No
  Sender: FDA-Public Use
  Company Number: US-ALLERGAN-1008669US

PATIENT
  Age: 52 Year
  Sex: Female

DRUGS (3)
  1. LATISSE [Suspect]
     Indication: MADAROSIS
     Dosage: 1 GTT, QHS
     Route: 061
     Dates: start: 20100610, end: 20100629
  2. OIL OF OLAY [Concomitant]
     Dosage: UNK
  3. BLUSH [Concomitant]

REACTIONS (1)
  - MADAROSIS [None]
